FAERS Safety Report 23530064 (Version 2)
Quarter: 2024Q1

REPORT INFORMATION
  Report Type: Spontaneous
  Country: AU (occurrence: AU)
  Receive Date: 20240216
  Receipt Date: 20240316
  Transmission Date: 20240410
  Serious: Yes (Other)
  Sender: FDA-Public Use
  Company Number: AU-AMGEN-AUSSP2024029281

PATIENT
  Age: 78 Year
  Sex: Female
  Weight: 43 kg

DRUGS (3)
  1. PROLIA [Suspect]
     Active Substance: DENOSUMAB
     Indication: Osteoporosis
     Dosage: 60 MILLIGRAM, QMO
     Route: 058
  2. PROLIA [Suspect]
     Active Substance: DENOSUMAB
     Indication: Osteoarthritis
     Dosage: 60 MILLIGRAM, Q6MO
     Route: 058
  3. CARBIMAZOLE [Concomitant]
     Active Substance: CARBIMAZOLE
     Dosage: UNK

REACTIONS (3)
  - Osteonecrosis of jaw [Recovered/Resolved]
  - Tooth extraction [Unknown]
  - Off label use [Unknown]

NARRATIVE: CASE EVENT DATE: 20230901
